FAERS Safety Report 24978244 (Version 1)
Quarter: 2025Q1

REPORT INFORMATION
  Report Type: Spontaneous
  Country: JP (occurrence: JP)
  Receive Date: 20250217
  Receipt Date: 20250217
  Transmission Date: 20250408
  Serious: Yes (Hospitalization, Other)
  Sender: Kenton Chemicals & Pharmaceuticals
  Company Number: JP-Kenton Chemicals + Pharmaceuticals Corporation-2171252

PATIENT
  Age: 70 Year
  Sex: Female

DRUGS (1)
  1. ANASTROZOLE [Suspect]
     Active Substance: ANASTROZOLE
     Indication: Breast cancer stage I

REACTIONS (1)
  - Interstitial lung disease [Recovered/Resolved]
